FAERS Safety Report 23886320 (Version 1)
Quarter: 2024Q2

REPORT INFORMATION
  Report Type: Spontaneous
  Country: US (occurrence: US)
  Receive Date: 20240522
  Receipt Date: 20240522
  Transmission Date: 20240716
  Serious: Yes (Other)
  Sender: FDA-Public Use
  Company Number: US-PFIZER INC-202400105546

PATIENT
  Age: 66 Year
  Sex: Female

DRUGS (2)
  1. XELJANZ [Suspect]
     Active Substance: TOFACITINIB CITRATE
     Indication: Rheumatoid arthritis
     Dosage: 10 MG, 2X/DAY
     Route: 048
  2. XELJANZ [Suspect]
     Active Substance: TOFACITINIB CITRATE
     Dosage: UNK
     Dates: start: 2018, end: 202403

REACTIONS (8)
  - Transient ischaemic attack [Unknown]
  - Atrial fibrillation [Unknown]
  - Off label use [Unknown]
  - COVID-19 [Unknown]
  - Immune system disorder [Unknown]
  - Sensitivity to weather change [Unknown]
  - Pain [Unknown]
  - Bedridden [Unknown]

NARRATIVE: CASE EVENT DATE: 20200101
